FAERS Safety Report 7558332-4 (Version None)
Quarter: 2011Q2

REPORT INFORMATION
  Report Type: 
  Country: None (occurrence: None)
  Receive Date: 20110620
  Receipt Date: 20110616
  Transmission Date: 20111010
  Serious: Yes (Death, Other)
  Sender: FDA-Public Use
  Company Number: US-AMGEN-USASP2011031015

PATIENT
  Age: 50 Year
  Sex: Male

DRUGS (3)
  1. IVIGLOB-EX [Concomitant]
  2. NPLATE [Suspect]
     Indication: IDIOPATHIC THROMBOCYTOPENIC PURPURA
     Dates: start: 20101229, end: 20110113
  3. CORTICOSTEROIDS [Concomitant]

REACTIONS (2)
  - DRUG INEFFECTIVE [None]
  - PRE-EXISTING DISEASE [None]
